FAERS Safety Report 6571299-0 (Version None)
Quarter: 2010Q1

REPORT INFORMATION
  Report Type: 
  Country: None (occurrence: None)
  Receive Date: 20100129
  Receipt Date: 20100114
  Transmission Date: 20100710
  Serious: Yes (Hospitalization)
  Sender: FDA-Public Use
  Company Number: 2010000218

PATIENT
  Age: 55 Year
  Sex: Male

DRUGS (11)
  1. ERLOTINIB HYDROCHLORIDE [Suspect]
     Indication: PANCREATIC CARCINOMA METASTATIC
     Dosage: (100 MG,QD),ORAL
     Route: 048
     Dates: start: 20090324
  2. GEMCITABINE [Suspect]
     Indication: PANCREATIC CARCINOMA METASTATIC
     Dosage: (2000 MG/KG),INTRAVENOUS
     Route: 042
     Dates: start: 20090324
  3. NEXIUM [Concomitant]
  4. CARDIOASPIRIN (ACEETYLSALICYLIC ACID) [Concomitant]
  5. ALLOPURINOL [Concomitant]
  6. ACTRAPID [Concomitant]
  7. LANTUS [Concomitant]
  8. FUROSEMIDE [Concomitant]
  9. SPIRONOLACTONE [Concomitant]
  10. PERINDOPRIL ERBUMINE [Concomitant]
  11. EMCORETIC (BISELECT) [Concomitant]

REACTIONS (1)
  - HYPERTENSION [None]
